FAERS Safety Report 17777647 (Version 1)
Quarter: 2020Q2

REPORT INFORMATION
  Report Type: Spontaneous
  Country: US (occurrence: US)
  Receive Date: 20200513
  Receipt Date: 20200513
  Transmission Date: 20200714
  Serious: No
  Sender: FDA-Public Use
  Company Number: US-VANDA PHARMACEUTICALS, INC-2019ILOUS001777

PATIENT
  Sex: Male
  Weight: 113.83 kg

DRUGS (4)
  1. FANAPT [Suspect]
     Active Substance: ILOPERIDONE
     Indication: SCHIZOPHRENIA
     Dosage: 6 MG, QHS AT BEDTIME
     Route: 048
     Dates: start: 20190726
  2. FANAPT [Suspect]
     Active Substance: ILOPERIDONE
     Dosage: QHS  DOSE DECREASED
     Route: 048
     Dates: start: 20191029, end: 20191029
  3. GABAPENTIN. [Concomitant]
     Active Substance: GABAPENTIN
     Indication: PRODUCT USED FOR UNKNOWN INDICATION
     Dosage: UNK
  4. VISTARIL                           /00058402/ [Concomitant]
     Active Substance: HYDROXYZINE HYDROCHLORIDE
     Indication: PRODUCT USED FOR UNKNOWN INDICATION
     Dosage: UNK

REACTIONS (1)
  - Ejaculation failure [Recovered/Resolved]
